FAERS Safety Report 21278514 (Version 2)
Quarter: 2022Q3

REPORT INFORMATION
  Report Type: Spontaneous
  Country: DE (occurrence: DE)
  Receive Date: 20220831
  Receipt Date: 20220926
  Transmission Date: 20221027
  Serious: Yes (Other)
  Sender: FDA-Public Use
  Company Number: DE-002147023-NVSC2022DE194517

PATIENT
  Sex: Male

DRUGS (1)
  1. AIMOVIG [Suspect]
     Active Substance: ERENUMAB-AOOE
     Indication: Product used for unknown indication
     Dosage: 140 MILLIGRAM, QMO
     Route: 065

REACTIONS (3)
  - Psoriatic arthropathy [Unknown]
  - SAPHO syndrome [Unknown]
  - Arthralgia [Unknown]

NARRATIVE: CASE EVENT DATE: 20220701
